FAERS Safety Report 7503753-9 (Version None)
Quarter: 2011Q2

REPORT INFORMATION
  Report Type: 
  Country: None (occurrence: None)
  Receive Date: 20110525
  Receipt Date: 20110506
  Transmission Date: 20111010
  Serious: No
  Sender: FDA-Public Use
  Company Number: US-B.I. PHARMACEUTICALS,INC./RIDGEFIELD-2011-BP-09232BP

PATIENT
  Sex: Female

DRUGS (8)
  1. PRADAXA [Suspect]
     Indication: ATRIAL FIBRILLATION
     Dosage: 150 MG
  2. CRANBERRY [Concomitant]
  3. MULTAQ [Concomitant]
  4. ELMIRON [Concomitant]
  5. CALCIUM CARBONATE [Concomitant]
  6. RED YEAST RICE [Concomitant]
  7. PROBIOTICS [Concomitant]
  8. ASCORBIC ACID [Concomitant]

REACTIONS (2)
  - PRURITUS [None]
  - EYE INFECTION [None]
